FAERS Safety Report 11363630 (Version 3)
Quarter: 2015Q3

REPORT INFORMATION
  Report Type: Spontaneous
  Country: US (occurrence: US)
  Receive Date: 20150811
  Receipt Date: 20150902
  Transmission Date: 20151125
  Serious: No
  Sender: FDA-Public Use
  Company Number: US-BAYER-2015-397276

PATIENT
  Age: 60 Year
  Sex: Female

DRUGS (1)
  1. ULTRAVIST [Suspect]
     Active Substance: IOPROMIDE
     Dosage: 300 MG/ML, ONCE
     Route: 042
     Dates: start: 20150803, end: 20150803

REACTIONS (5)
  - Pruritus generalised [None]
  - Erythema [Recovering/Resolving]
  - Urticaria [None]
  - Pruritus [None]
  - Urticaria [Recovering/Resolving]

NARRATIVE: CASE EVENT DATE: 20150803
